FAERS Safety Report 25078573 (Version 1)
Quarter: 2025Q1

REPORT INFORMATION
  Report Type: Spontaneous
  Country: US (occurrence: None)
  Receive Date: 20250314
  Receipt Date: 20250314
  Transmission Date: 20250409
  Serious: Yes (Hospitalization)
  Sender: FDA-CTU
  Company Number: None

PATIENT
  Sex: Female

DRUGS (1)
  1. AUGTYRO [Suspect]
     Active Substance: REPOTRECTINIB
     Indication: Lung neoplasm malignant
     Dosage: 160MG DAILY BY MOUTH
     Route: 048
     Dates: start: 202501

REACTIONS (7)
  - Balance disorder [None]
  - Therapy change [None]
  - Gait disturbance [None]
  - Memory impairment [None]
  - Confusional state [None]
  - Disturbance in attention [None]
  - Behaviour disorder [None]
